FAERS Safety Report 15884009 (Version 1)
Quarter: 2019Q1

REPORT INFORMATION
  Report Type: Spontaneous
  Country: DE (occurrence: DE)
  Receive Date: 20190129
  Receipt Date: 20190129
  Transmission Date: 20190417
  Serious: Yes (Other)
  Sender: FDA-Public Use
  Company Number: DE-009507513-1812DEU010287

PATIENT
  Age: 73 Year
  Sex: Male
  Weight: 90 kg

DRUGS (5)
  1. VALSACOR [Concomitant]
     Active Substance: VALSARTAN
     Indication: HYPERTENSION
     Dosage: 160 MILLIGRAM, ONCE DAILY
  2. L THYROX [Concomitant]
     Indication: GOITRE
     Dosage: 125 ?G, ONCE DAILY
  3. ASS 100 [Concomitant]
     Active Substance: ASPIRIN
     Dosage: UNK
  4. INEGY [Suspect]
     Active Substance: EZETIMIBE\SIMVASTATIN
     Indication: HYPERCHOLESTEROLAEMIA
     Dosage: 10MG/20MG, ONCE DAILY
     Route: 048
     Dates: start: 20180717
  5. HYDROCORTISONE. [Concomitant]
     Active Substance: HYDROCORTISONE
     Indication: HYPOPITUITARISM
     Dosage: 10 MG, ONCE DAILY

REACTIONS (2)
  - Transitional cell carcinoma [Unknown]
  - Epistaxis [Recovered/Resolved]

NARRATIVE: CASE EVENT DATE: 20181129
